APPROVED DRUG PRODUCT: INCIVEK
Active Ingredient: TELAPREVIR
Strength: 375MG
Dosage Form/Route: TABLET;ORAL
Application: N201917 | Product #001
Applicant: VERTEX PHARMACEUTICALS INC
Approved: May 23, 2011 | RLD: No | RS: No | Type: DISCN

PATENTS:
Patent 8431615 | Expires: May 30, 2028